FAERS Safety Report 8322279-6 (Version None)
Quarter: 2012Q2

REPORT INFORMATION
  Report Type: 
  Country: None (occurrence: None)
  Receive Date: 20120430
  Receipt Date: 20120423
  Transmission Date: 20120825
  Serious: Yes (Other)
  Sender: FDA-Public Use
  Company Number: US-ASTRAZENECA-2012SE19437

PATIENT
  Age: 63 Year
  Sex: Male

DRUGS (2)
  1. B12 SHOT [Concomitant]
  2. RHINOCORT [Suspect]
     Route: 045

REACTIONS (3)
  - ANAEMIA [None]
  - MYOCARDIAL INFARCTION [None]
  - NASAL DISCOMFORT [None]
